FAERS Safety Report 14571014 (Version 3)
Quarter: 2023Q4

REPORT INFORMATION
  Report Type: Spontaneous
  Country: IT (occurrence: IT)
  Receive Date: 20180226
  Receipt Date: 20231223
  Transmission Date: 20240110
  Serious: Yes (Death, Life-Threatening, Hospitalization, Other)
  Sender: FDA-Public Use
  Company Number: None

PATIENT
  Age: 52 Year
  Sex: Male

DRUGS (6)
  1. MYCOPHENOLATE MOFETIL [Suspect]
     Active Substance: MYCOPHENOLATE MOFETIL
     Indication: Immunosuppression
     Dates: start: 2011
  2. GENTAMICIN SULFATE [Suspect]
     Active Substance: GENTAMICIN SULFATE
     Indication: Liver abscess
     Dates: start: 2011
  3. CYCLOSPORINE [Suspect]
     Active Substance: CYCLOSPORINE
     Indication: Immunosuppression
     Dates: start: 2011
  4. METHYLPREDNISOLONE [Suspect]
     Active Substance: METHYLPREDNISOLONE
     Indication: Immunosuppression
     Dates: start: 2011
  5. MEROPENEM [Suspect]
     Active Substance: MEROPENEM
     Indication: Liver abscess
     Dates: start: 2011
  6. COLISTIN [Suspect]
     Active Substance: COLISTIN
     Indication: Liver abscess
     Dates: start: 2011

REACTIONS (6)
  - Septic shock [Fatal]
  - Liver abscess [Fatal]
  - Klebsiella infection [Fatal]
  - Abdominal rigidity [Fatal]
  - Drug ineffective [Fatal]
  - Peritonitis [Fatal]

NARRATIVE: CASE EVENT DATE: 20110101
